FAERS Safety Report 5389130-8 (Version None)
Quarter: 2007Q3

REPORT INFORMATION
  Report Type: 
  Country: None (occurrence: None)
  Receive Date: 20070717
  Receipt Date: 20070705
  Transmission Date: 20080115
  Serious: Yes (Other)
  Sender: FDA-Public Use
  Company Number: HQWYE045016JUL07

PATIENT
  Age: 46 Year
  Sex: Female
  Weight: 72 kg

DRUGS (5)
  1. TYGACIL [Suspect]
     Indication: CHOLECYSTITIS
     Route: 040
     Dates: start: 20070705, end: 20070705
  2. DIPHENHYDRAMINE HCL [Concomitant]
     Indication: URTICARIA
     Route: 042
     Dates: start: 20070628
  3. CIPROFLOXACIN [Concomitant]
     Indication: URINARY TRACT INFECTION
     Route: 048
     Dates: start: 20070628
  4. CORTISONE ACETATE [Concomitant]
     Indication: URTICARIA
     Route: 042
     Dates: start: 20070628
  5. FEXOFENADINE [Concomitant]
     Indication: URTICARIA
     Route: 048
     Dates: start: 20070628

REACTIONS (2)
  - CONDITION AGGRAVATED [None]
  - URTICARIA [None]
